FAERS Safety Report 4385791-0 (Version None)
Quarter: 2004Q2

REPORT INFORMATION
  Report Type: 
  Country: None (occurrence: None)
  Receive Date: 20040628
  Receipt Date: 20031202
  Transmission Date: 20050107
  Serious: Yes (Other)
  Sender: FDA-Public Use
  Company Number: US-AMGEN-US059103

PATIENT
  Sex: Male

DRUGS (4)
  1. ENBREL [Suspect]
     Indication: REITER'S SYNDROME
     Route: 058
     Dates: start: 20000801
  2. BETOPTIC [Concomitant]
  3. TRUSOPT [Concomitant]
  4. LUMIGAN [Concomitant]

REACTIONS (1)
  - OPTIC NEUROPATHY [None]
